FAERS Safety Report 6033106-4 (Version None)
Quarter: 2009Q1

REPORT INFORMATION
  Report Type: 
  Country: None (occurrence: None)
  Receive Date: 20090109
  Receipt Date: 20090106
  Transmission Date: 20090719
  Serious: Yes (Death, Other)
  Sender: FDA-Public Use
  Company Number: JP-ABBOTT-08P-087-0490354-00

PATIENT
  Age: 85 Year
  Sex: Female

DRUGS (12)
  1. EURODIN [Suspect]
     Indication: INSOMNIA
     Route: 048
     Dates: end: 20070704
  2. BLOPRESS [Suspect]
     Indication: CARDIAC FAILURE CHRONIC
     Route: 048
     Dates: start: 20070421, end: 20070704
  3. BLOPRESS [Suspect]
     Indication: COLON CANCER
  4. EURODIN [Concomitant]
     Route: 048
     Dates: end: 20070704
  5. DIGOXIN [Concomitant]
     Indication: CARDIAC FAILURE CHRONIC
     Route: 048
     Dates: end: 20070704
  6. DIART [Concomitant]
     Indication: CARDIAC FAILURE CHRONIC
     Route: 048
     Dates: end: 20070704
  7. ALDACTONE [Concomitant]
     Indication: CARDIAC FAILURE CHRONIC
     Route: 048
     Dates: end: 20070704
  8. WARFARIN POTASSIUM [Concomitant]
     Indication: ARTERIOSCLEROSIS OBLITERANS
     Route: 048
     Dates: end: 20070704
  9. NORVASC [Concomitant]
     Indication: HYPERTENSION
     Route: 048
     Dates: end: 20070704
  10. PANALDINE [Concomitant]
     Indication: ARTERIOSCLEROSIS OBLITERANS
     Route: 048
     Dates: start: 20060614, end: 20070704
  11. PANALDINE [Concomitant]
     Indication: CORONARY ARTERIAL STENT INSERTION
  12. FRANDOL [Concomitant]
     Indication: ANGINA PECTORIS
     Route: 062
     Dates: start: 20060609, end: 20071107

REACTIONS (3)
  - CEREBRAL INFARCTION [None]
  - COLON CANCER [None]
  - GASTROINTESTINAL HAEMORRHAGE [None]
